FAERS Safety Report 7149377-7 (Version None)
Quarter: 2010Q4

REPORT INFORMATION
  Report Type: 
  Country: None (occurrence: None)
  Receive Date: 20101209
  Receipt Date: 20101015
  Transmission Date: 20110411
  Serious: No
  Sender: FDA-Public Use
  Company Number: US-KINGPHARMUSA00001-K201001293

PATIENT
  Sex: Female
  Weight: 56.689 kg

DRUGS (3)
  1. EMBEDA [Suspect]
     Indication: BACK PAIN
     Dosage: 80 MG, Q12H
     Route: 048
  2. EMBEDA [Suspect]
     Indication: NECK PAIN
  3. LEXAPRO [Concomitant]
     Indication: DEPRESSION

REACTIONS (1)
  - ALOPECIA [None]
